FAERS Safety Report 7577609-X (Version None)
Quarter: 2011Q2

REPORT INFORMATION
  Report Type: 
  Country: None (occurrence: None)
  Receive Date: 20110628
  Receipt Date: 20100714
  Transmission Date: 20111010
  Serious: No
  Sender: FDA-Public Use
  Company Number: US-KINGPHARMUSA00001-K201000881

PATIENT
  Age: 60 Year
  Sex: Male
  Weight: 68.027 kg

DRUGS (4)
  1. BICILLIN L-A [Suspect]
     Indication: LYME DISEASE
     Dosage: 1.2 MILLION UNITS, QW
     Route: 030
     Dates: start: 20100601, end: 20100101
  2. BICILLIN L-A [Suspect]
     Dosage: 1.2 MILLION UNIT, BIW
     Route: 030
     Dates: start: 20100101, end: 20100101
  3. BICILLIN L-A [Suspect]
     Dosage: 1.2 MILLION UNIT, QOD
     Route: 030
     Dates: start: 20100101, end: 20100701
  4. SYNTHROID [Concomitant]

REACTIONS (1)
  - BURNING SENSATION [None]
